FAERS Safety Report 15405940 (Version 2)
Quarter: 2018Q3

REPORT INFORMATION
  Report Type: Spontaneous
  Country: US (occurrence: US)
  Receive Date: 20180920
  Receipt Date: 20180925
  Transmission Date: 20181010
  Serious: No
  Sender: FDA-Public Use
  Company Number: US-PFIZER INC-2018374741

PATIENT
  Age: 50 Year
  Sex: Male

DRUGS (2)
  1. SPIRONOLACTONE. [Suspect]
     Active Substance: SPIRONOLACTONE
     Indication: BLOOD TESTOSTERONE ABNORMAL
     Dosage: 100 MG, 1X/DAY (100MG TABLET BY MOUTH ONCE A DAY)
     Route: 048
     Dates: end: 201807
  2. DEPO?ESTRADIOL [Concomitant]
     Active Substance: ESTRADIOL CYPIONATE
     Dosage: UNK

REACTIONS (2)
  - Blood testosterone decreased [Unknown]
  - Drug ineffective for unapproved indication [Unknown]
